FAERS Safety Report 6375688-9 (Version None)
Quarter: 2009Q3

REPORT INFORMATION
  Report Type: 
  Country: None (occurrence: None)
  Receive Date: 20090922
  Receipt Date: 20090922
  Transmission Date: 20100115
  Serious: Yes (Disabling, Other)
  Sender: FDA-Public Use
  Company Number: None

PATIENT
  Age: 51 Year
  Sex: Male

DRUGS (1)
  1. XIGRIS [Suspect]
     Dosage: 24 MCG/KG/HR CONTINUOUS INFUSION IV DRIP
     Route: 041
     Dates: start: 20090502, end: 20090503

REACTIONS (1)
  - BLOODY AIRWAY DISCHARGE [None]
